FAERS Safety Report 19109894 (Version 1)
Quarter: 2021Q2

REPORT INFORMATION
  Report Type: Spontaneous
  Country: US (occurrence: US)
  Receive Date: 20210409
  Receipt Date: 20210409
  Transmission Date: 20210717
  Serious: Yes (Hospitalization)
  Sender: FDA-Public Use
  Company Number: US-BAUSCH-BL-2021-011386

PATIENT
  Age: 68 Year
  Sex: Female
  Weight: 81.65 kg

DRUGS (8)
  1. COVID?19 VACCINE NOS. [Suspect]
     Active Substance: COVID-19 VACCINE NOS
     Indication: COVID-19 PROPHYLAXIS
     Dosage: FIRST DOSE IN SERIES VIA INJECTION INTO RIGHT DELTOID
     Route: 065
     Dates: start: 20210306
  2. MEDROL [Suspect]
     Active Substance: METHYLPREDNISOLONE
     Indication: ANAPHYLAXIS PROPHYLAXIS
     Route: 065
     Dates: start: 20210303, end: 20210303
  3. MEDROL [Suspect]
     Active Substance: METHYLPREDNISOLONE
     Route: 065
     Dates: start: 20210304, end: 20210304
  4. ZYRTEC [Suspect]
     Active Substance: CETIRIZINE HYDROCHLORIDE
     Indication: ANAPHYLAXIS PROPHYLAXIS
     Route: 065
     Dates: start: 20210303
  5. PEPCID [Suspect]
     Active Substance: FAMOTIDINE
     Indication: ANAPHYLAXIS PROPHYLAXIS
     Route: 048
     Dates: start: 20210303
  6. MEDROL [Suspect]
     Active Substance: METHYLPREDNISOLONE
     Dosage: PRIOR TO VACCINE
     Route: 065
     Dates: start: 20210306
  7. MEDROL [Suspect]
     Active Substance: METHYLPREDNISOLONE
     Route: 065
     Dates: start: 20210305, end: 20210305
  8. ALLEGRA [Suspect]
     Active Substance: FEXOFENADINE HYDROCHLORIDE
     Indication: ANAPHYLAXIS PROPHYLAXIS
     Route: 065
     Dates: start: 20210303

REACTIONS (1)
  - Blood pressure increased [Recovered/Resolved]

NARRATIVE: CASE EVENT DATE: 20210306
